FAERS Safety Report 4851058-7 (Version None)
Quarter: 2005Q4

REPORT INFORMATION
  Report Type: 
  Country: None (occurrence: None)
  Receive Date: 20051212
  Receipt Date: 20051205
  Transmission Date: 20060501
  Serious: Yes (Hospitalization, Other)
  Sender: FDA-Public Use
  Company Number: NSADSS2002037894

PATIENT
  Sex: Female
  Weight: 86.18 kg

DRUGS (15)
  1. PROPULSID [Suspect]
     Route: 048
  2. PROPULSID [Suspect]
     Route: 048
  3. DOXEPIN HCL [Concomitant]
  4. DEPO-PROVERA [Concomitant]
  5. PRILOSEC [Concomitant]
  6. GLUCOPHAGE [Concomitant]
  7. LORATADINE [Concomitant]
  8. FLUCONAZOLE [Concomitant]
  9. METRONIDAZOLE [Concomitant]
  10. SOTALOL [Concomitant]
  11. PROPRANALOL [Concomitant]
  12. FUROSEMIDE [Concomitant]
  13. ELAVIL [Concomitant]
  14. PAMELOR [Concomitant]
  15. TOFRANIL [Concomitant]

REACTIONS (13)
  - ANXIETY [None]
  - CARDIAC FLUTTER [None]
  - CHEST DISCOMFORT [None]
  - DIARRHOEA [None]
  - DYSPNOEA [None]
  - GASTROOESOPHAGEAL REFLUX DISEASE [None]
  - HAEMATOCHEZIA [None]
  - HEART RATE IRREGULAR [None]
  - MUSCLE DISORDER [None]
  - PAIN [None]
  - SYNCOPE [None]
  - TACHYCARDIA [None]
  - VENTRICULAR EXTRASYSTOLES [None]
